FAERS Safety Report 7880195-8 (Version None)
Quarter: 2011Q4

REPORT INFORMATION
  Report Type: 
  Country: None (occurrence: None)
  Receive Date: 20111101
  Receipt Date: 20111024
  Transmission Date: 20120403
  Serious: No
  Sender: FDA-Public Use
  Company Number: US-PFIZER INC-2011261254

PATIENT
  Sex: Female

DRUGS (2)
  1. AMLODIPINE BESYLATE [Suspect]
     Dosage: UNKNOWN DOSE
  2. SPIRONOLACTONE [Suspect]
     Dosage: UNKNOWN DOSE

REACTIONS (2)
  - MALAISE [None]
  - DRUG INEFFECTIVE [None]
